FAERS Safety Report 7208618-8 (Version None)
Quarter: 2011Q1

REPORT INFORMATION
  Report Type: 
  Country: None (occurrence: None)
  Receive Date: 20110104
  Receipt Date: 20101229
  Transmission Date: 20110831
  Serious: Yes (Hospitalization)
  Sender: FDA-Public Use
  Company Number: FR-SANOFI-AVENTIS-2010SA078299

PATIENT
  Age: 38 Year
  Sex: Female

DRUGS (15)
  1. PLAVIX [Concomitant]
     Route: 048
  2. LASIX [Suspect]
     Route: 048
     Dates: start: 20100118
  3. PROGRAF [Interacting]
     Indication: IMMUNOSUPPRESSION
     Route: 048
     Dates: start: 20060101
  4. ASPEGIC 1000 [Concomitant]
  5. FERROUS SULFATE [Concomitant]
     Route: 048
  6. MOLSIDOMINE [Concomitant]
  7. MOPRAL [Concomitant]
     Route: 048
  8. SECTRAL [Concomitant]
     Route: 048
  9. TAZOCILLINE [Suspect]
     Indication: INFECTION
     Dates: start: 20100118, end: 20100120
  10. CELLCEPT [Concomitant]
     Indication: IMMUNOSUPPRESSION
     Dosage: 750 MG + 500 MG
  11. ROVAMYCINE [Interacting]
     Indication: INFECTION
     Dates: start: 20100118, end: 20100120
  12. MONICOR [Concomitant]
     Route: 048
  13. CORTANCYL [Concomitant]
     Indication: IMMUNOSUPPRESSION
     Route: 048
  14. ELISOR [Concomitant]
     Route: 048
  15. AUGMENTIN '125' [Concomitant]
     Indication: BRONCHITIS
     Dates: start: 20100101

REACTIONS (3)
  - OVERDOSE [None]
  - RENAL FAILURE ACUTE [None]
  - DRUG INTERACTION [None]
